FAERS Safety Report 23306246 (Version 1)
Quarter: 2023Q4

REPORT INFORMATION
  Report Type: Other
  Country: ES (occurrence: ES)
  Receive Date: 20231218
  Receipt Date: 20231218
  Transmission Date: 20240110
  Serious: Yes (Life-Threatening, Hospitalization, Disabling, Other)
  Sender: FDA-Public Use
  Company Number: None

PATIENT

DRUGS (6)
  1. ACETAMINOPHEN [Suspect]
     Active Substance: ACETAMINOPHEN
     Indication: Pain
     Dosage: 2 GRAM WEEKLY
     Route: 048
     Dates: start: 2022
  2. MIRTAZAPINE [Suspect]
     Active Substance: MIRTAZAPINE
     Indication: Affective disorder
     Dosage: 15 MILLIGRAM, QD
     Route: 048
     Dates: start: 20230605
  3. OZANIMOD [Suspect]
     Active Substance: OZANIMOD
     Indication: Multiple sclerosis relapse
     Dosage: UNK
     Route: 048
     Dates: start: 20230807
  4. OZANIMOD [Suspect]
     Active Substance: OZANIMOD
     Indication: Multiple sclerosis
  5. BISOPROLOL [Concomitant]
     Active Substance: BISOPROLOL\BISOPROLOL FUMARATE
     Indication: Chest pain
     Dosage: 1.25 MILLIGRAM, QD
     Route: 048
     Dates: start: 20201031
  6. LEVOTHYROXINE SODIUM [Concomitant]
     Active Substance: LEVOTHYROXINE SODIUM
     Indication: Hypothyroidism
     Dosage: 88 MICROGRAM, QD
     Route: 048
     Dates: start: 20160308

REACTIONS (7)
  - Hyperbilirubinaemia [Recovering/Resolving]
  - Asthenia [Recovering/Resolving]
  - Acute hepatic failure [Recovering/Resolving]
  - Decreased appetite [Recovering/Resolving]
  - Encephalopathy [Unknown]
  - Jaundice [Recovering/Resolving]
  - Malaise [Recovering/Resolving]

NARRATIVE: CASE EVENT DATE: 20230822
